FAERS Safety Report 4988063-6 (Version None)
Quarter: 2006Q2

REPORT INFORMATION
  Report Type: 
  Country: None (occurrence: None)
  Receive Date: 20060425
  Receipt Date: 20060413
  Transmission Date: 20061013
  Serious: Yes (Hospitalization)
  Sender: FDA-Public Use
  Company Number: 2006050653

PATIENT
  Age: 63 Year
  Sex: Female
  Weight: 61 kg

DRUGS (2)
  1. LIPITOR [Suspect]
     Indication: ILL-DEFINED DISORDER
     Dosage: ORAL
     Route: 048
     Dates: start: 20030101
  2. FLECAINIDE ACETATE [Concomitant]

REACTIONS (9)
  - HIATUS HERNIA [None]
  - HYPERSENSITIVITY [None]
  - HYPOXIA [None]
  - LUNG DISORDER [None]
  - NAUSEA [None]
  - OOPHORECTOMY [None]
  - PYREXIA [None]
  - RENAL INFARCT [None]
  - SPLENIC INFARCTION [None]
